FAERS Safety Report 11433772 (Version 5)
Quarter: 2016Q3

REPORT INFORMATION
  Report Type: Report from Study
  Country: CO (occurrence: CO)
  Receive Date: 20150831
  Receipt Date: 20160719
  Transmission Date: 20161109
  Serious: Yes (Other)
  Sender: FDA-Public Use
  Company Number: PHHY2015CO104129

PATIENT
  Sex: Male
  Weight: 58 kg

DRUGS (2)
  1. GLIVEC [Suspect]
     Active Substance: IMATINIB MESYLATE
     Indication: CHRONIC MYELOID LEUKAEMIA
     Dosage: UNK
     Route: 048
     Dates: start: 2007
  2. GLIVEC [Suspect]
     Active Substance: IMATINIB MESYLATE
     Dosage: 10 DF WEEKLY (2 DF OF 400 MG ON MONDAY, TUESDAY AND WEDNESDAY, AND 1 DF OF 400MG ON REST OF THE DAYS
     Route: 048
     Dates: start: 20080701

REACTIONS (4)
  - Philadelphia chromosome positive [Unknown]
  - Appendicitis [Recovered/Resolved]
  - Weight increased [Unknown]
  - Body height increased [Unknown]
